FAERS Safety Report 21522955 (Version 1)
Quarter: 2022Q4

REPORT INFORMATION
  Report Type: Report from Study
  Country: US (occurrence: US)
  Receive Date: 20221029
  Receipt Date: 20221029
  Transmission Date: 20230112
  Serious: Yes (Other)
  Sender: FDA-Public Use
  Company Number: US-ABBVIE-4178002

PATIENT
  Sex: Female

DRUGS (4)
  1. HUMIRA [Suspect]
     Active Substance: ADALIMUMAB
     Indication: Rheumatoid arthritis
     Route: 058
  2. Pfizer/BioNTech [Concomitant]
     Indication: COVID-19 immunisation
     Dosage: 1ST DOSE ONCE
     Route: 030
     Dates: start: 2021, end: 2021
  3. Pfizer/BioNTech [Concomitant]
     Indication: COVID-19 immunisation
     Dosage: 2ND DOSE ONCE
     Route: 030
     Dates: start: 2021, end: 2021
  4. Pfizer/BioNTech [Concomitant]
     Indication: COVID-19 immunisation
     Dosage: 3RD BOOSTER DOSE ONCE
     Route: 030
     Dates: start: 2021, end: 2021

REACTIONS (2)
  - Rotator cuff syndrome [Unknown]
  - Joint range of motion decreased [Recovering/Resolving]
